FAERS Safety Report 8234318-1 (Version None)
Quarter: 2012Q1

REPORT INFORMATION
  Report Type: 
  Country: None (occurrence: None)
  Receive Date: 20120326
  Receipt Date: 20120315
  Transmission Date: 20120608
  Serious: Yes (Hospitalization)
  Sender: FDA-Public Use
  Company Number: US-JNJFOC-20120308429

PATIENT
  Sex: Male
  Weight: 117.48 kg

DRUGS (4)
  1. REMICADE [Suspect]
     Indication: CROHN'S DISEASE
     Dosage: TOTAL OF 21 INFUSIONS
     Route: 042
     Dates: start: 20111209
  2. MESALAMINE [Concomitant]
     Indication: CROHN'S DISEASE
  3. BUDESONIDE [Concomitant]
     Indication: CROHN'S DISEASE
  4. REMICADE [Suspect]
     Route: 042
     Dates: start: 20090123

REACTIONS (1)
  - RENAL CELL CARCINOMA [None]
